FAERS Safety Report 9911458 (Version 1)
Quarter: 2014Q1

REPORT INFORMATION
  Report Type: Spontaneous
  Country: US (occurrence: US)
  Receive Date: 20140219
  Receipt Date: 20140219
  Transmission Date: 20141002
  Serious: Yes (Hospitalization, Other)
  Sender: FDA-Public Use
  Company Number: PHEH2014US002875

PATIENT
  Age: 44 Year
  Sex: Female

DRUGS (6)
  1. EXFORGE HCT [Suspect]
     Dosage: 2 DF (160/10/25MG), QD
     Dates: end: 20121231
  2. METFORMIN HYDROCHLORIDE ER TABLETS [Suspect]
     Dosage: UNK UKN, UNK
  3. NITROGLYCERINE [Concomitant]
     Dosage: UNK UKN, UNK
  4. CLONIDINE [Concomitant]
     Dosage: UNK UKN, UNK
  5. GLIPIZIDE [Concomitant]
     Dosage: UNK UKN, UNK
  6. LEVEMIR [Concomitant]
     Dosage: UNK UKN, UNK

REACTIONS (2)
  - Hypertension [Unknown]
  - Chest pain [Unknown]
